FAERS Safety Report 15154578 (Version 1)
Quarter: 2018Q3

REPORT INFORMATION
  Report Type: Spontaneous
  Country: CA (occurrence: CA)
  Receive Date: 20180717
  Receipt Date: 20180717
  Transmission Date: 20181010
  Serious: Yes (Other)
  Sender: FDA-Public Use
  Company Number: CA-BRACCO-2018CA03728

PATIENT
  Age: 48 Year
  Sex: Female

DRUGS (1)
  1. MULTIHANCE [Suspect]
     Active Substance: GADOBENATE DIMEGLUMINE
     Indication: NUCLEAR MAGNETIC RESONANCE IMAGING
     Dosage: 20.0 ML, SINGLE
     Route: 042

REACTIONS (3)
  - Contrast media reaction [Unknown]
  - Dysphonia [Unknown]
  - Swollen tongue [Unknown]
